FAERS Safety Report 12864761 (Version 1)
Quarter: 2016Q4

REPORT INFORMATION
  Report Type: Spontaneous
  Country: US (occurrence: US)
  Receive Date: 20161019
  Receipt Date: 20161019
  Transmission Date: 20170207
  Serious: Yes (Disabling)
  Sender: FDA-Public Use
  Company Number: None

PATIENT
  Age: 59 Year
  Sex: Female
  Weight: 87.75 kg

DRUGS (4)
  1. TURMERIC [Concomitant]
     Active Substance: TURMERIC
  2. MULTI VITAMIN AND MINERAL VITAMIN [Concomitant]
     Active Substance: .ALPHA.-TOCOPHEROL ACETATE, D-\ASCORBIC ACID\CALCIUM PANTOTHENATE\FOLIC ACID\MANGANESE\NIACINAMIDE\PYRIDOXINE\RIBOFLAVIN\THIAMINE\VITAMIN A\ZINC OXIDE
  3. KRILL OIL [Concomitant]
     Active Substance: DIETARY SUPPLEMENT
  4. CIPRO [Suspect]
     Active Substance: CIPROFLOXACIN HYDROCHLORIDE
     Indication: DRUG THERAPY
     Dosage: ?          QUANTITY:20 TABLET(S);?
     Route: 048
     Dates: start: 20020204

REACTIONS (6)
  - Tendon rupture [None]
  - Neuropathy peripheral [None]
  - Hypoaesthesia [None]
  - Impaired work ability [None]
  - Pain in extremity [None]
  - Tendon discomfort [None]

NARRATIVE: CASE EVENT DATE: 20020204
